FAERS Safety Report 9507627 (Version 1)
Quarter: 2013Q3

REPORT INFORMATION
  Report Type: Spontaneous
  Country: US (occurrence: None)
  Receive Date: 20130906
  Receipt Date: 20130906
  Transmission Date: 20140515
  Serious: No
  Sender: FDA-Public Use
  Company Number: None

PATIENT
  Age: 84 Year
  Sex: Male
  Weight: 81.65 kg

DRUGS (2)
  1. BANANA BOAT SPORT PERFORMANCE SPF 30 [Suspect]
     Indication: SUNBURN
     Dosage: SPF 30
     Dates: start: 20130902, end: 20130909
  2. BANANA BOAT SPORT PERFORMANCE SPF 30 [Suspect]
     Indication: PROPHYLAXIS
     Dosage: SPF 30
     Dates: start: 20130902, end: 20130909

REACTIONS (1)
  - Adverse event [None]
